FAERS Safety Report 24969368 (Version 1)
Quarter: 2025Q1

REPORT INFORMATION
  Report Type: Spontaneous
  Country: ES (occurrence: None)
  Receive Date: 20250214
  Receipt Date: 20250214
  Transmission Date: 20250408
  Serious: Yes (Other)
  Sender: ADIENNE PHARMA & BIOTECH
  Company Number: ES-ADIENNEP-2025AD000077

PATIENT
  Sex: Female

DRUGS (6)
  1. THIOTEPA [Suspect]
     Active Substance: THIOTEPA
     Indication: Autologous haematopoietic stem cell transplant
     Dosage: 300 MG/M2/DAY, 1 DAY
     Route: 042
  2. ETOPOSIDE [Suspect]
     Active Substance: ETOPOSIDE
     Indication: Autologous haematopoietic stem cell transplant
     Dosage: 50 MG/M2/DAY, 3 DAYS
     Route: 042
  3. IFOSFAMIDE [Suspect]
     Active Substance: IFOSFAMIDE
     Dosage: 3 G/M2/DAY, 3 DAYS (3G/M2)
     Route: 042
  4. DOXORUBICIN [Suspect]
     Active Substance: DOXORUBICIN
     Dosage: 37.5/MG/M2/DAY, 2 DAYS
     Route: 042
  5. SARGRAMOSTIM [Suspect]
     Active Substance: SARGRAMOSTIM
     Dosage: 500 UG/M2/DAY SC FROM DAYS 0 TO 5
     Route: 058
  6. NAXITAMAB [Suspect]
     Active Substance: NAXITAMAB
     Route: 042

REACTIONS (4)
  - Pain [Unknown]
  - Hypotension [Unknown]
  - Urticaria [Unknown]
  - Deafness [Unknown]
